FAERS Safety Report 21108701 (Version 1)
Quarter: 2022Q3

REPORT INFORMATION
  Report Type: Spontaneous
  Country: FR (occurrence: FR)
  Receive Date: 20220721
  Receipt Date: 20220721
  Transmission Date: 20221027
  Serious: Yes (Hospitalization)
  Sender: FDA-Public Use
  Company Number: None

PATIENT
  Age: 84 Year
  Sex: Female
  Weight: 66 kg

DRUGS (3)
  1. SOTALOL HYDROCHLORIDE [Suspect]
     Active Substance: SOTALOL HYDROCHLORIDE
     Indication: Tachycardia
     Dosage: CHLORHYDRATE DE SOTALOL , UNIT DOSE : 80 MG , FREQUENCY TIME : 1 DAYS ., THERAPY START DATE : ASKU
  2. LERCANIDIPINE HYDROCHLORIDE [Suspect]
     Active Substance: LERCANIDIPINE HYDROCHLORIDE
     Indication: Hypertension
     Dosage: CHLORHYDRATE DE LERCANIDIPINE , UNIT DOSE : 10 MG , FREQUENCY TIME : 1 DAYS , THERAPY START DATE : A
  3. PERINDOPRIL [Suspect]
     Active Substance: PERINDOPRIL
     Indication: Hypertension
     Dosage: UNIT DOSE : 10 MG , FREQUENCY TIME : 1 DAYS , THERAPY START DATE : ASKU

REACTIONS (2)
  - Orthostatic hypotension [Recovered/Resolved]
  - General physical health deterioration [Recovered/Resolved]

NARRATIVE: CASE EVENT DATE: 20220610
